FAERS Safety Report 15978205 (Version 2)
Quarter: 2019Q2

REPORT INFORMATION
  Report Type: Spontaneous
  Country: US (occurrence: US)
  Receive Date: 20190218
  Receipt Date: 20190418
  Transmission Date: 20190711
  Serious: Yes (Hospitalization)
  Sender: FDA-Public Use
  Company Number: US-CELGENEUS-USA-20190202941

PATIENT
  Age: 59 Year
  Sex: Female
  Weight: 75 kg

DRUGS (4)
  1. MEDI4736 (DURVALUMAB) [Concomitant]
     Active Substance: DURVALUMAB
     Indication: GALLBLADDER ADENOCARCINOMA
     Dosage: 1500 MILLIGRAM
     Route: 042
     Dates: start: 20180820, end: 20190114
  2. AZD 9150 [Concomitant]
     Active Substance: AZD-9150
     Indication: GALLBLADDER ADENOCARCINOMA
     Dosage: 200 MILLIGRAM
     Route: 042
     Dates: start: 20180813, end: 20190114
  3. CARBOPLATIN. [Concomitant]
     Active Substance: CARBOPLATIN
     Indication: GALLBLADDER ADENOCARCINOMA
     Dosage: 5 AUC
     Route: 042
     Dates: start: 20180813, end: 20180924
  4. ABRAXANE [Suspect]
     Active Substance: PACLITAXEL
     Indication: GALLBLADDER ADENOCARCINOMA
     Dosage: 100 MILLIGRAM/SQ. METER
     Route: 042
     Dates: start: 20180813, end: 20181022

REACTIONS (1)
  - Hypotension [Recovered/Resolved]

NARRATIVE: CASE EVENT DATE: 20190129
